FAERS Safety Report 9753606 (Version 2)
Quarter: 2014Q1

REPORT INFORMATION
  Report Type: Report from Study
  Country: US (occurrence: US)
  Receive Date: 20131213
  Receipt Date: 20140103
  Transmission Date: 20141002
  Serious: Yes (Death, Hospitalization)
  Sender: FDA-Public Use
  Company Number: PHEH2013US025580

PATIENT
  Age: 55 Year
  Sex: Male

DRUGS (13)
  1. TASIGNA [Suspect]
     Indication: NEOPLASM MALIGNANT
     Dosage: 400 MG, Q12H
     Route: 048
     Dates: start: 20100825
  2. GLUCOPHAGE [Concomitant]
  3. VITRON-C [Concomitant]
  4. WARFARIN [Concomitant]
  5. IRON [Concomitant]
  6. WATER PILLS [Concomitant]
  7. POTASSIUM [Concomitant]
  8. NOVOLIN [Concomitant]
  9. VYTORIN [Concomitant]
  10. DOCUSATE [Concomitant]
  11. MECLIZINE [Concomitant]
  12. CM PROMETHAZINE [Concomitant]
  13. FENOFIBRATE [Concomitant]

REACTIONS (2)
  - Death [Fatal]
  - Cerebrovascular accident [Not Recovered/Not Resolved]
